FAERS Safety Report 6372419-3 (Version None)
Quarter: 2009Q3

REPORT INFORMATION
  Report Type: 
  Country: None (occurrence: None)
  Receive Date: 20090924
  Receipt Date: 20080717
  Transmission Date: 20100115
  Serious: No
  Sender: FDA-Public Use
  Company Number: US-ASTRAZENECA-2008UW14833

PATIENT

DRUGS (8)
  1. SEROQUEL [Suspect]
     Indication: AFFECTIVE DISORDER
     Dosage: 100MG IN AM AND 400 MG QHS
     Route: 048
     Dates: start: 20080501
  2. SEROQUEL [Suspect]
     Indication: OBSESSIVE-COMPULSIVE DISORDER
     Dosage: 100MG IN AM AND 400 MG QHS
     Route: 048
     Dates: start: 20080501
  3. SEROQUEL [Suspect]
     Indication: PERSONALITY DISORDER
     Dosage: 100MG IN AM AND 400 MG QHS
     Route: 048
     Dates: start: 20080501
  4. SEROQUEL [Suspect]
     Indication: ABNORMAL BEHAVIOUR
     Dosage: 100MG IN AM AND 400 MG QHS
     Route: 048
     Dates: start: 20080501
  5. ROZEREM [Concomitant]
  6. BENADRYL [Concomitant]
     Dates: end: 20080715
  7. ABILIFY [Concomitant]
  8. ABILIFY [Concomitant]

REACTIONS (1)
  - EUPHORIC MOOD [None]
